FAERS Safety Report 8346156-X (Version None)
Quarter: 2012Q2

REPORT INFORMATION
  Report Type: 
  Country: None (occurrence: None)
  Receive Date: 20120507
  Receipt Date: 20120425
  Transmission Date: 20120825
  Serious: Yes (Hospitalization)
  Sender: FDA-Public Use
  Company Number: UTC-018140

PATIENT
  Age: 86 Year
  Sex: Female

DRUGS (3)
  1. LETAIRIS [Concomitant]
  2. DETROL [Concomitant]
  3. TYVASO [Suspect]
     Indication: COR PULMONALE CHRONIC
     Dosage: 216 MCG (54 MCG, 4 IN 1 D), INHALATION
     Route: 055
     Dates: start: 20120302

REACTIONS (1)
  - DEHYDRATION [None]
